FAERS Safety Report 8481749-0 (Version None)
Quarter: 2012Q3

REPORT INFORMATION
  Report Type: 
  Country: None (occurrence: None)
  Receive Date: 20120702
  Receipt Date: 20120625
  Transmission Date: 20120928
  Serious: Yes (Hospitalization, Disabling, Other)
  Sender: FDA-Public Use
  Company Number: US-ROCHE-549222

PATIENT
  Sex: Male
  Weight: 72.6 kg

DRUGS (3)
  1. ALBUTEROL [Concomitant]
     Indication: ASTHMA
     Dosage: HE WAS TAKING ALBUTEROL INHALERS AS NEEDED
     Route: 055
  2. ACCUTANE [Suspect]
     Dosage: PATIENT WAS PRESCRIBED ACCUTANE 80 MG DAILY
     Route: 048
     Dates: start: 19970903, end: 19971228
  3. ACCUTANE [Suspect]
     Indication: ACNE
     Route: 048

REACTIONS (13)
  - COLITIS ULCERATIVE [None]
  - SPINAL COMPRESSION FRACTURE [None]
  - LIP DRY [None]
  - OSTEOPENIA [None]
  - ARTHRALGIA [None]
  - POST-TRAUMATIC STRESS DISORDER [None]
  - CROHN'S DISEASE [None]
  - NASAL DRYNESS [None]
  - EMOTIONAL DISTRESS [None]
  - DEPRESSION [None]
  - DRY SKIN [None]
  - COLITIS [None]
  - OCULAR HYPERAEMIA [None]
